FAERS Safety Report 16035982 (Version 4)
Quarter: 2019Q2

REPORT INFORMATION
  Report Type: Report from Study
  Country: None (occurrence: FR)
  Receive Date: 20190305
  Receipt Date: 20190524
  Transmission Date: 20190711
  Serious: Yes (Death, Other)
  Sender: FDA-Public Use
  Company Number: FR-ABBVIE-19K-056-2688288-00

PATIENT
  Age: 71 Year
  Sex: Female
  Weight: 75 kg

DRUGS (6)
  1. KARDEGIC [Concomitant]
     Active Substance: ASPIRIN DL-LYSINE
     Indication: CARDIAC FAILURE
     Dates: start: 2000
  2. VENCLYXTO [Suspect]
     Active Substance: VENETOCLAX
     Route: 048
     Dates: start: 20190122
  3. VENCLYXTO [Suspect]
     Active Substance: VENETOCLAX
     Route: 048
     Dates: start: 20190115, end: 20190121
  4. VENCLYXTO [Suspect]
     Active Substance: VENETOCLAX
     Indication: CHRONIC LYMPHOCYTIC LEUKAEMIA
     Route: 048
     Dates: start: 20181224, end: 20181230
  5. VENCLYXTO [Suspect]
     Active Substance: VENETOCLAX
     Route: 048
     Dates: start: 20190107, end: 20190114
  6. VENCLYXTO [Suspect]
     Active Substance: VENETOCLAX
     Route: 048
     Dates: start: 20181231, end: 20190106

REACTIONS (9)
  - Blood uric acid increased [Recovered/Resolved]
  - Blood uric acid increased [Recovered/Resolved]
  - Cough [Unknown]
  - Neutropenia [Recovered/Resolved]
  - Miosis [Not Recovered/Not Resolved]
  - Balance disorder [Unknown]
  - Gait inability [Not Recovered/Not Resolved]
  - Nausea [Recovered/Resolved]
  - Cerebellar syndrome [Fatal]

NARRATIVE: CASE EVENT DATE: 20181228
